FAERS Safety Report 5811563-3 (Version None)
Quarter: 2008Q3

REPORT INFORMATION
  Report Type: 
  Country: None (occurrence: None)
  Receive Date: 20080716
  Receipt Date: 20080710
  Transmission Date: 20090109
  Serious: Yes (Hospitalization, Disabling)
  Sender: FDA-Public Use
  Company Number: US-MERCK-0807USA01793

PATIENT
  Age: 52 Year
  Sex: Male

DRUGS (6)
  1. ISENTRESS [Suspect]
     Indication: HIV INFECTION
     Route: 048
  2. EMTRIVA [Concomitant]
     Route: 065
  3. TRUVADA [Concomitant]
     Route: 065
  4. ZERIT [Concomitant]
     Route: 065
  5. REYATAZ [Concomitant]
     Route: 065
  6. SELZENTRY [Concomitant]
     Route: 065

REACTIONS (1)
  - HAEMATEMESIS [None]
